FAERS Safety Report 6301289-4 (Version None)
Quarter: 2009Q3

REPORT INFORMATION
  Report Type: 
  Country: None (occurrence: None)
  Receive Date: 20090806
  Receipt Date: 20090806
  Transmission Date: 20100115
  Serious: Yes (Hospitalization)
  Sender: FDA-Public Use
  Company Number: None

PATIENT
  Age: 71 Year
  Sex: Female
  Weight: 68 kg

DRUGS (1)
  1. DILAUDID [Suspect]
     Indication: IMAGING PROCEDURE
     Dosage: 2 MG X1 IV BOLUS
     Route: 040
     Dates: start: 20090728, end: 20090728

REACTIONS (4)
  - PULSE ABSENT [None]
  - RESPIRATORY RATE DECREASED [None]
  - SYNCOPE [None]
  - UNRESPONSIVE TO STIMULI [None]
